FAERS Safety Report 16424052 (Version 1)
Quarter: 2019Q2

REPORT INFORMATION
  Report Type: Spontaneous
  Country: US (occurrence: US)
  Receive Date: 20190613
  Receipt Date: 20190613
  Transmission Date: 20190711
  Serious: No
  Sender: FDA-Public Use
  Company Number: US-TEVA-2019-US-1063425

PATIENT

DRUGS (1)
  1. WARFARIN SODIUM TEVA [Suspect]
     Active Substance: WARFARIN SODIUM
     Indication: VENOUS THROMBOSIS
     Route: 065

REACTIONS (3)
  - International normalised ratio increased [Unknown]
  - Product quality issue [Unknown]
  - Therapeutic product effect increased [Unknown]
